FAERS Safety Report 7933826 (Version 2)
Quarter: 2013Q3

REPORT INFORMATION
  Report Type: Report from Study
  Country: IT (occurrence: IT)
  Receive Date: 20110506
  Receipt Date: 20130808
  Transmission Date: 20140515
  Serious: Yes (Death, Hospitalization)
  Sender: FDA-Public Use
  Company Number: IT-ROCHE-775123

PATIENT
  Age: 47 Year
  Sex: Male
  Weight: 84 kg

DRUGS (9)
  1. BEVACIZUMAB [Suspect]
     Indication: GLIOBLASTOMA
     Dosage: DOSE: 10 MG/KG
     Route: 042
     Dates: start: 20110421, end: 20110421
  2. DEXAMETHASONE [Concomitant]
     Indication: BRAIN NEOPLASM
     Route: 048
  3. KANRENOL [Concomitant]
     Indication: HYPOKALAEMIA
     Dosage: FREQUENCY:QD
     Route: 048
  4. CALCIUM LEVOFOLINATE [Concomitant]
     Indication: SUPPORTIVE CARE
     Dosage: FREQUENCY:QD
     Route: 048
  5. CITALOPRAM [Concomitant]
     Indication: DEPRESSION
     Dosage: FREQUENCY:QD
     Route: 048
  6. LEVETIRACETAM [Concomitant]
     Indication: EPILEPSY
     Route: 048
  7. LANOXIN [Concomitant]
     Indication: PROPHYLAXIS AGAINST GASTROINTESTINAL ULCER
     Dosage: FREQUENCY:QD
     Route: 048
  8. ENOXAPARIN [Concomitant]
     Indication: EMBOLISM VENOUS
     Dosage: DOSE 8000 U
     Route: 058
     Dates: start: 20110215, end: 20110501
  9. ENOXAPARIN [Concomitant]
     Dosage: DOSE:4000 U
     Route: 058

REACTIONS (5)
  - Hypotension [Not Recovered/Not Resolved]
  - Tachycardia [Not Recovered/Not Resolved]
  - Somnolence [Not Recovered/Not Resolved]
  - Diarrhoea [Not Recovered/Not Resolved]
  - Death [Fatal]
